FAERS Safety Report 5265406-X (Version None)
Quarter: 2007Q1

REPORT INFORMATION
  Report Type: 
  Country: None (occurrence: None)
  Receive Date: 20070314
  Receipt Date: 20070305
  Transmission Date: 20070707
  Serious: Yes (Other)
  Sender: FDA-Public Use
  Company Number: JP-PFIZER INC-2007015109

PATIENT
  Sex: Female
  Weight: 52 kg

DRUGS (7)
  1. ZOLOFT [Suspect]
     Indication: DEPRESSION
     Route: 048
  2. CONSTAN [Concomitant]
     Route: 048
  3. MYSLEE [Concomitant]
     Route: 048
  4. LOXOPROFEN SODIUM [Concomitant]
     Route: 048
  5. SEPAZON [Concomitant]
     Route: 048
  6. CLEAMINE [Concomitant]
     Route: 048
  7. ZYPREXA [Concomitant]
     Route: 048

REACTIONS (6)
  - AMNESIA [None]
  - DELUSION [None]
  - DEPRESSED LEVEL OF CONSCIOUSNESS [None]
  - IRRITABILITY [None]
  - SOMNOLENCE [None]
  - SUICIDAL IDEATION [None]
